FAERS Safety Report 5406238-9 (Version None)
Quarter: 2007Q3

REPORT INFORMATION
  Report Type: 
  Country: None (occurrence: None)
  Receive Date: 20070802
  Receipt Date: 20070802
  Transmission Date: 20080115
  Serious: Yes (Hospitalization, Other)
  Sender: FDA-Public Use
  Company Number: None

PATIENT

DRUGS (1)
  1. CORRECTOL [Suspect]
     Indication: CONSTIPATION
     Dosage: QD;PO
     Route: 048
     Dates: start: 20070601

REACTIONS (1)
  - COLITIS [None]
